FAERS Safety Report 20761378 (Version 1)
Quarter: 2022Q2

REPORT INFORMATION
  Report Type: Spontaneous
  Country: US (occurrence: US)
  Receive Date: 20220428
  Receipt Date: 20220428
  Transmission Date: 20220720
  Serious: Yes (Other)
  Sender: FDA-Public Use
  Company Number: US-SUN PHARMACEUTICAL INDUSTRIES LTD-2022R1-334253

PATIENT
  Age: 71 Year
  Sex: Male

DRUGS (3)
  1. DEXAMETHASONE [Suspect]
     Active Substance: DEXAMETHASONE
     Indication: COVID-19 pneumonia
     Dosage: 6 MILLIGRAM, DAILY
     Route: 065
  2. ENOXAPARIN SODIUM [Suspect]
     Active Substance: ENOXAPARIN SODIUM
     Indication: Deep vein thrombosis
     Dosage: 1 MILLIGRAM/KILOGRAM, BID
     Route: 065
  3. REMDESIVIR [Suspect]
     Active Substance: REMDESIVIR
     Indication: COVID-19 pneumonia
     Dosage: UNK
     Route: 065

REACTIONS (1)
  - Disease progression [Unknown]
